FAERS Safety Report 7233408-X (Version None)
Quarter: 2011Q1

REPORT INFORMATION
  Report Type: 
  Country: None (occurrence: None)
  Receive Date: 20110119
  Receipt Date: 20110110
  Transmission Date: 20110831
  Serious: Yes (Hospitalization, Other)
  Sender: FDA-Public Use
  Company Number: US-ASTRAZENECA-2011SE01710

PATIENT
  Age: 92 Year
  Sex: Female

DRUGS (2)
  1. CRESTOR [Suspect]
     Route: 048
  2. NEXIUM [Suspect]
     Route: 048

REACTIONS (5)
  - IATROGENIC INJURY [None]
  - RETINAL DETACHMENT [None]
  - NASOPHARYNGITIS [None]
  - EYE OPERATION [None]
  - DRY THROAT [None]
